FAERS Safety Report 9613298 (Version 2)
Quarter: 2013Q4

REPORT INFORMATION
  Report Type: Report from Study
  Country: US (occurrence: US)
  Receive Date: 20131010
  Receipt Date: 20131010
  Transmission Date: 20140711
  Serious: Yes (Hospitalization)
  Sender: FDA-Public Use
  Company Number: US-BRISTOL-MYERS SQUIBB COMPANY-19384536

PATIENT
  Age: 74 Year
  Sex: Male
  Weight: 106 kg

DRUGS (9)
  1. BYDUREON [Suspect]
     Indication: TYPE 2 DIABETES MELLITUS
     Dosage: ONE DOSE ON:3SEP2013?LAST DOSE:10SEP2013
     Dates: start: 20130617
  2. BLINDED: PLACEBO [Interacting]
     Indication: TYPE 2 DIABETES MELLITUS
     Dosage: ONE DOSE ON:3SEP2013?LAST DOSE:10SEP2013
     Dates: start: 20130617
  3. WARFARIN SODIUM [Interacting]
     Indication: ATRIAL FIBRILLATION
     Dosage: 1DF = 20 UNITS NOS?IN 2005: 5, 2.5 UNITS NOS
     Dates: start: 2005
  4. METOPROLOL [Concomitant]
     Indication: CORONARY ARTERY DISEASE
     Dosage: 1DF = 100 UNITS NOS
     Dates: start: 2007
  5. METOPROLOL [Concomitant]
     Indication: HYPERTENSION
     Dosage: 1DF = 100 UNITS NOS
     Dates: start: 2007
  6. LISINOPRIL [Concomitant]
     Indication: HYPERTENSION
     Dosage: 1DF = 20 UNITS NOS
     Dates: start: 2007
  7. ATORVASTATIN [Concomitant]
     Indication: HYPERLIPIDAEMIA
     Dosage: 1DF = 20 UNITS NOS
     Dates: start: 2007
  8. VITAMIN D [Concomitant]
     Indication: VITAMIN D DEFICIENCY
     Dosage: 1DF = 2000 UNITS NOS
     Dates: start: 2007
  9. METFORMIN [Concomitant]
     Indication: TYPE 2 DIABETES MELLITUS
     Dosage: TABS
     Route: 048
     Dates: start: 20130115

REACTIONS (4)
  - International normalised ratio increased [Recovered/Resolved]
  - Drug interaction [Recovered/Resolved]
  - Renal failure acute [Unknown]
  - Gastroenteritis viral [Unknown]
